FAERS Safety Report 6161864-7 (Version None)
Quarter: 2009Q2

REPORT INFORMATION
  Report Type: 
  Country: None (occurrence: None)
  Receive Date: 20090421
  Receipt Date: 20090410
  Transmission Date: 20091009
  Serious: Yes (Hospitalization, Disabling)
  Sender: FDA-Public Use
  Company Number: A0779464A

PATIENT
  Age: 49 Year
  Sex: Female
  Weight: 85.5 kg

DRUGS (3)
  1. AVANDIA [Suspect]
     Dosage: 2MG PER DAY
     Route: 048
     Dates: start: 20060101, end: 20070901
  2. LISINOPRIL [Concomitant]
     Indication: HYPERTENSION
  3. VENTOLIN [Concomitant]

REACTIONS (1)
  - CEREBROVASCULAR ACCIDENT [None]
